FAERS Safety Report 24560956 (Version 2)
Quarter: 2024Q4

REPORT INFORMATION
  Report Type: Spontaneous
  Country: TW (occurrence: TW)
  Receive Date: 20241029
  Receipt Date: 20241105
  Transmission Date: 20250115
  Serious: Yes (Other)
  Sender: BRISTOL-MYERS SQUIBB COMPANY
  Company Number: TW-BRISTOL-MYERS SQUIBB COMPANY-2024-168908

PATIENT
  Age: 80 Year
  Sex: Female
  Weight: 57 kg

DRUGS (4)
  1. OPDIVO [Suspect]
     Active Substance: NIVOLUMAB
     Indication: Gastric cancer
     Dosage: IVF
     Route: 042
  2. OPDIVO [Suspect]
     Active Substance: NIVOLUMAB
     Dates: start: 20240927
  3. OPDIVO [Suspect]
     Active Substance: NIVOLUMAB
     Dates: start: 20240912
  4. OPDIVO [Suspect]
     Active Substance: NIVOLUMAB

REACTIONS (3)
  - Hypersensitivity [Recovered/Resolved]
  - Prescribed underdose [Unknown]
  - Tumour marker abnormal [Recovered/Resolved]

NARRATIVE: CASE EVENT DATE: 20240801
